FAERS Safety Report 17939635 (Version 1)
Quarter: 2020Q2

REPORT INFORMATION
  Report Type: Report from Study
  Country: US (occurrence: US)
  Receive Date: 20200625
  Receipt Date: 20200625
  Transmission Date: 20200714
  Serious: Yes (Death, Other)
  Sender: FDA-Public Use
  Company Number: US-AUROBINDO-AUR-APL-2020-030226

PATIENT
  Age: 61 Year
  Sex: Male

DRUGS (7)
  1. CLOPIDOGREL [Suspect]
     Active Substance: CLOPIDOGREL BISULFATE
     Indication: ANTIPLATELET THERAPY
     Dosage: 300 MILLIGRAM (BOLUS DOSE)
     Route: 048
  2. EPTIFIBATIDE INJECTION [Suspect]
     Active Substance: EPTIFIBATIDE
     Indication: PRODUCT USED FOR UNKNOWN INDICATION
     Dosage: 180 MICROGRAM/KILOGRAM (SINGLE BOLUS)
     Route: 042
  3. ALTEPLASE. [Suspect]
     Active Substance: ALTEPLASE
     Dosage: UNK
     Route: 042
  4. ALTEPLASE. [Suspect]
     Active Substance: ALTEPLASE
     Indication: PRODUCT USED FOR UNKNOWN INDICATION
     Dosage: UNK
     Route: 013
  5. CLOPIDOGREL [Suspect]
     Active Substance: CLOPIDOGREL BISULFATE
     Dosage: 75 MILLIGRAM, ONCE A DAY
     Route: 048
  6. ASPIRIN. [Suspect]
     Active Substance: ASPIRIN
     Indication: ANTIPLATELET THERAPY
     Dosage: 325 MILLIGRAM, ONCE A DAY
     Route: 048
  7. EPTIFIBATIDE INJECTION [Suspect]
     Active Substance: EPTIFIBATIDE
     Dosage: 2 MICROGRAM/KILOGRAM, DAILY
     Route: 042

REACTIONS (4)
  - Areflexia [Unknown]
  - Condition aggravated [Unknown]
  - Ischaemic stroke [Fatal]
  - Haemorrhagic transformation stroke [Unknown]
